FAERS Safety Report 9421028 (Version 2)
Quarter: 2013Q3

REPORT INFORMATION
  Report Type: Report from Study
  Country: US (occurrence: US)
  Receive Date: 20130725
  Receipt Date: 20130729
  Transmission Date: 20140515
  Serious: No
  Sender: FDA-Public Use
  Company Number: US-VERTEX PHARMACEUTICALS INC-2013-008257

PATIENT
  Age: 23 Year
  Sex: Female
  Weight: 37 kg

DRUGS (27)
  1. VX-770 [Suspect]
     Indication: CYSTIC FIBROSIS
     Dosage: 150 MG, BID
     Route: 048
     Dates: start: 20130709
  2. SODIUM BICARBONATE [Concomitant]
  3. ZYRTEC [Concomitant]
  4. ZANTAC [Concomitant]
  5. VFEND [Concomitant]
  6. CALCIUM [Concomitant]
  7. CULTURELLE [Concomitant]
  8. ADVAIR [Concomitant]
  9. VALCYTE [Concomitant]
  10. PREDNISONE [Concomitant]
  11. AZATHIOPRINE [Concomitant]
  12. GENTAMICIN [Concomitant]
  13. SALINE [Concomitant]
  14. MEPHYTON [Concomitant]
  15. CREON [Concomitant]
  16. CYMBALTA [Concomitant]
  17. AMITIZA [Concomitant]
  18. SPIRONOLACTONE [Concomitant]
  19. LOSARTAN [Concomitant]
  20. POTASSIUM [Concomitant]
  21. TACROLIMUS [Concomitant]
  22. NOVOLOG [Concomitant]
  23. URSODIOL [Concomitant]
  24. AZITHROMYCIN [Concomitant]
  25. SULFAMETHOXAZOLE [Concomitant]
  26. PROCARDIA [Concomitant]
  27. XOPENEX HFA [Concomitant]

REACTIONS (2)
  - Swelling face [Recovered/Resolved]
  - Local swelling [Recovered/Resolved]
